FAERS Safety Report 22112932 (Version 2)
Quarter: 2023Q2

REPORT INFORMATION
  Report Type: Spontaneous
  Country: TW (occurrence: TW)
  Receive Date: 20230320
  Receipt Date: 20230417
  Transmission Date: 20230722
  Serious: Yes (Other)
  Sender: FDA-Public Use
  Company Number: TW-AMGEN-TWNSP2023045314

PATIENT
  Sex: Female

DRUGS (2)
  1. BLINCYTO [Suspect]
     Active Substance: BLINATUMOMAB
     Indication: B precursor type acute leukaemia
     Dosage: UNK
     Route: 065
     Dates: start: 201702, end: 201706
  2. BLINCYTO [Suspect]
     Active Substance: BLINATUMOMAB
     Dosage: UNK
     Route: 065
     Dates: start: 201709, end: 201804

REACTIONS (3)
  - Acute lymphocytic leukaemia recurrent [Recovered/Resolved]
  - Myelosuppression [Recovered/Resolved]
  - Therapy partial responder [Unknown]

NARRATIVE: CASE EVENT DATE: 20170101
